FAERS Safety Report 23135596 (Version 2)
Quarter: 2023Q4

REPORT INFORMATION
  Report Type: Spontaneous
  Country: HN (occurrence: HN)
  Receive Date: 20231101
  Receipt Date: 20231130
  Transmission Date: 20240110
  Serious: Yes (Death, Hospitalization, Other)
  Sender: FDA-Public Use
  Company Number: HN-PFIZER INC-PV202300177940

PATIENT
  Age: 75 Year
  Sex: Male

DRUGS (4)
  1. BOSULIF [Suspect]
     Active Substance: BOSUTINIB MONOHYDRATE
     Indication: Chronic myeloid leukaemia
     Dosage: 400 MG
  2. BOSULIF [Suspect]
     Active Substance: BOSUTINIB MONOHYDRATE
     Dosage: 300 MG
     Dates: start: 20230517, end: 20230817
  3. PROSTAMOL [SERENOA REPENS EXTRACT] [Concomitant]
     Indication: Benign prostatic hyperplasia
     Dosage: UNK
  4. FUROSEMIDE [Concomitant]
     Active Substance: FUROSEMIDE
     Dosage: UNK

REACTIONS (2)
  - Cardiac disorder [Fatal]
  - Diarrhoea [Unknown]

NARRATIVE: CASE EVENT DATE: 20230101
